FAERS Safety Report 5786692-3 (Version None)
Quarter: 2008Q2

REPORT INFORMATION
  Report Type: 
  Country: None (occurrence: None)
  Receive Date: 20080618
  Receipt Date: 20080612
  Transmission Date: 20081010
  Serious: Yes (Other)
  Sender: FDA-Public Use
  Company Number: L08-TUN-02053-01

PATIENT
  Age: 34 Year
  Sex: Male

DRUGS (5)
  1. CARBAMAZEPINE [Suspect]
     Indication: EPILEPSY
  2. VALPROIC ACID [Concomitant]
  3. PHENOBARBITAL TAB [Concomitant]
  4. PARACETAMOL (ACETAMINOPHEN) (PARACETAMOL) [Concomitant]
  5. AMOXICILLIN AND CLAVULANATE POTASSIUM [Concomitant]

REACTIONS (9)
  - ALANINE AMINOTRANSFERASE INCREASED [None]
  - ANGIOEDEMA [None]
  - ASPARTATE AMINOTRANSFERASE INCREASED [None]
  - BLOOD LACTATE DEHYDROGENASE INCREASED [None]
  - DRUG RASH WITH EOSINOPHILIA AND SYSTEMIC SYMPTOMS [None]
  - HEPATIC FUNCTION ABNORMAL [None]
  - HUMAN HERPESVIRUS 6 INFECTION [None]
  - LYMPHADENITIS [None]
  - WHITE BLOOD CELL COUNT ABNORMAL [None]
